FAERS Safety Report 9224890 (Version 5)
Quarter: 2014Q4

REPORT INFORMATION
  Report Type: Spontaneous
  Country: US (occurrence: US)
  Receive Date: 20130411
  Receipt Date: 20141008
  Transmission Date: 20150529
  Serious: Yes (Hospitalization, Other)
  Sender: FDA-Public Use
  Company Number: US-PFIZER INC-2013110239

PATIENT
  Age: 38 Year
  Sex: Female
  Weight: 156 kg

DRUGS (14)
  1. LETAIRIS [Suspect]
     Active Substance: AMBRISENTAN
     Dosage: UNK
  2. FLOLAN [Suspect]
     Active Substance: EPOPROSTENOL SODIUM
     Dosage: UNK
  3. FLOLAN [Suspect]
     Active Substance: EPOPROSTENOL SODIUM
     Dosage: UNK
  4. FLOLAN [Suspect]
     Active Substance: EPOPROSTENOL SODIUM
     Dosage: UNK
  5. FLOLAN [Suspect]
     Active Substance: EPOPROSTENOL SODIUM
     Dosage: UNK
  6. FLOLAN [Suspect]
     Active Substance: EPOPROSTENOL SODIUM
     Dosage: UNK
  7. IMODIUM [Concomitant]
     Active Substance: LOPERAMIDE HYDROCHLORIDE
     Dosage: UNK
  8. REVATIO [Suspect]
     Active Substance: SILDENAFIL CITRATE
     Dosage: UNK
  9. FLOLAN [Suspect]
     Active Substance: EPOPROSTENOL SODIUM
     Dosage: 35 NG/KG/MIN CONTINUOUSLY (CONCENTRATION 90,000 NG/ML, VIAL STREN
  10. LASIX [Concomitant]
     Active Substance: FUROSEMIDE
     Dosage: UNK
  11. FLOLAN [Suspect]
     Active Substance: EPOPROSTENOL SODIUM
     Indication: PULMONARY ARTERIAL HYPERTENSION
     Dosage: 40 NG/KG/MIN CONTINUOSLY (CONCENTRATION 105,000 NG/ML, PUMP RATE 86 ML/DAY, VIAL STRENGTH 1.5 MG)
     Route: 042
     Dates: start: 20140308
  12. FLOLAN [Suspect]
     Active Substance: EPOPROSTENOL SODIUM
     Dosage: UNK
  13. FLOLAN [Suspect]
     Active Substance: EPOPROSTENOL SODIUM
     Dosage: UNK
  14. FLOLAN [Suspect]
     Active Substance: EPOPROSTENOL SODIUM
     Dosage: UNK

REACTIONS (22)
  - Fluid retention [Unknown]
  - Oedema [Unknown]
  - Nervousness [Unknown]
  - Rash [Not Recovered/Not Resolved]
  - Rash pruritic [Unknown]
  - Swelling [Unknown]
  - Pulmonary arterial hypertension [Not Recovered/Not Resolved]
  - Pain in jaw [Not Recovered/Not Resolved]
  - Weight increased [Unknown]
  - Ascites [Unknown]
  - Erythema [Not Recovered/Not Resolved]
  - Urticaria [Unknown]
  - Infertility female [Unknown]
  - Peripheral swelling [Unknown]
  - Catheterisation cardiac [Unknown]
  - Abdominal distension [Not Recovered/Not Resolved]
  - Diarrhoea [Not Recovered/Not Resolved]
  - Dyspnoea [Unknown]
  - Flushing [Not Recovered/Not Resolved]
  - Gastrointestinal disorder [Unknown]
  - Dermatitis contact [Unknown]
  - Fluid retention [Unknown]

NARRATIVE: CASE EVENT DATE: 20121113
